FAERS Safety Report 5358212-9 (Version None)
Quarter: 2007Q2

REPORT INFORMATION
  Report Type: 
  Country: None (occurrence: None)
  Receive Date: 20070530
  Receipt Date: 20061016
  Transmission Date: 20071010
  Serious: Yes (Hospitalization, Other)
  Sender: FDA-Public Use
  Company Number: US200604001014

PATIENT
  Sex: Male
  Weight: 94.3 kg

DRUGS (2)
  1. ZYPREXA [Suspect]
     Dosage: SEE IMAGE
     Dates: start: 20021230
  2. ZYPREXA [Suspect]
     Dosage: SEE IMAGE
     Dates: start: 20050615

REACTIONS (4)
  - BLOOD CHOLESTEROL INCREASED [None]
  - CONVULSION [None]
  - METABOLIC DISORDER [None]
  - PANCREATITIS [None]
